FAERS Safety Report 19486300 (Version 2)
Quarter: 2021Q3

REPORT INFORMATION
  Report Type: Spontaneous
  Country: DE (occurrence: DE)
  Receive Date: 20210702
  Receipt Date: 20210928
  Transmission Date: 20211014
  Serious: Yes (Death, Hospitalization)
  Sender: FDA-Public Use
  Company Number: DE-ACCORD-229555

PATIENT
  Age: 73 Year
  Sex: Male
  Weight: 85 kg

DRUGS (6)
  1. GRANISETRON/GRANISETRON HYDROCHLORIDE [Concomitant]
     Active Substance: GRANISETRON HYDROCHLORIDE
     Dosage: 1 MG, UNKNOWN, ADMINISTERED PER CYCLE, THERAPY DATE FOR ALL: FROM 05?OCT?UNTIL 26?OCT?2020
     Route: 042
  2. PEMBROLIZUMAB. [Suspect]
     Active Substance: PEMBROLIZUMAB
     Indication: NON-SMALL CELL LUNG CANCER
     Dosage: 200 MG, UNKNOWN
     Route: 042
     Dates: start: 20201005, end: 20201103
  3. DEXAMETHASONE. [Concomitant]
     Active Substance: DEXAMETHASONE
     Indication: PRODUCT USED FOR UNKNOWN INDICATION
     Dosage: 12 MG, UNKNOWN, ADMINISTERED PER CYCLE, THERAPY DATE FOR ALL: FROM 05?OCT?UNTIL 26?OCT?2020
     Route: 042
  4. PEMETREXED. [Suspect]
     Active Substance: PEMETREXED
     Indication: NON-SMALL CELL LUNG CANCER
     Route: 042
     Dates: start: 20201005
  5. PEGFILGRASTIM [Concomitant]
     Active Substance: PEGFILGRASTIM
     Indication: PRODUCT USED FOR UNKNOWN INDICATION
     Dosage: 6 MG, UNKNOWN, ADMINISTERED PER CYCLE,THERAPY DATE FOR ALL: FROM 05OCT UNTIL?26OCT2020
     Route: 058
  6. CARBOPLATIN. [Suspect]
     Active Substance: CARBOPLATIN
     Indication: NON-SMALL CELL LUNG CANCER
     Dosage: 220 MG, UNKNOWN
     Route: 042

REACTIONS (3)
  - Pancytopenia [Fatal]
  - Sepsis [Fatal]
  - Staphylococcal sepsis [Fatal]
